FAERS Safety Report 20093748 (Version 1)
Quarter: 2021Q4

REPORT INFORMATION
  Report Type: Spontaneous
  Country: US (occurrence: US)
  Receive Date: 20211121
  Receipt Date: 20211121
  Transmission Date: 20220303
  Serious: No
  Sender: FDA-Public Use
  Company Number: US-AMGEN-USASP2021180663

PATIENT
  Age: 74 Year
  Sex: Male
  Weight: 74.8 kg

DRUGS (1)
  1. MVASI [Suspect]
     Active Substance: BEVACIZUMAB-AWWB
     Indication: Colorectal cancer
     Dosage: 410 MILLIGRAM
     Route: 065
     Dates: start: 20201010

REACTIONS (1)
  - Infection [Unknown]
